FAERS Safety Report 7553771-X (Version None)
Quarter: 2011Q2

REPORT INFORMATION
  Report Type: 
  Country: None (occurrence: None)
  Receive Date: 20110609
  Receipt Date: 20110524
  Transmission Date: 20111010
  Serious: Yes (Hospitalization)
  Sender: FDA-Public Use
  Company Number: 2135225-2011-00052

PATIENT
  Age: 52 Year
  Sex: Female

DRUGS (2)
  1. AETHOXYSKLEROL [Suspect]
     Indication: SCLEROTHERAPY
     Dates: start: 20110101
  2. AETHOXYSKLEROL [Suspect]
     Indication: HAEMORRHOID OPERATION
     Dates: start: 20110101

REACTIONS (5)
  - GASTROINTESTINAL DISORDER [None]
  - CAESAREAN SECTION [None]
  - PREMATURE SEPARATION OF PLACENTA [None]
  - ABDOMINAL PAIN LOWER [None]
  - DRUG EXPOSURE DURING PREGNANCY [None]
